FAERS Safety Report 6329873-2 (Version None)
Quarter: 2009Q3

REPORT INFORMATION
  Report Type: 
  Country: None (occurrence: None)
  Receive Date: 20090825
  Receipt Date: 20090812
  Transmission Date: 20100115
  Serious: Yes (Hospitalization)
  Sender: FDA-Public Use
  Company Number: WAES0907USA00321

PATIENT
  Age: 61 Year
  Sex: Female

DRUGS (7)
  1. JANUVIA [Suspect]
     Indication: TYPE 2 DIABETES MELLITUS
     Dosage: 100 MG/ DAILY, PO
     Route: 048
     Dates: start: 20090311, end: 20090603
  2. TAB PLACEBO (UNSPECIFIED) [Suspect]
     Indication: TYPE 2 DIABETES MELLITUS
     Dosage: PO
     Route: 048
     Dates: start: 20090311, end: 20090603
  3. TAB PLACEBO BASELINE THERAPY [Suspect]
     Dosage: PO
     Route: 048
     Dates: start: 20090225, end: 20090310
  4. PENTOXIFYLLINE [Suspect]
     Indication: DIZZINESS
     Dosage: 400 MG/DAILY, PO
     Route: 048
     Dates: start: 20090510, end: 20090610
  5. AMOXICILLIN AND CLAVULANATE POTASSIUM [Suspect]
     Indication: SINUSITIS
     Dosage: 1 GM/BID/ PO
     Route: 048
     Dates: start: 20090610, end: 20090624
  6. ZOCOR [Concomitant]
  7. METFORMIN HCL [Concomitant]

REACTIONS (4)
  - CONTUSION [None]
  - PETECHIAE [None]
  - SINUSITIS [None]
  - THROMBOCYTOPENIA [None]
